FAERS Safety Report 11637325 (Version 2)
Quarter: 2016Q1

REPORT INFORMATION
  Report Type: Spontaneous
  Country: US (occurrence: US)
  Receive Date: 20151016
  Receipt Date: 20160112
  Transmission Date: 20160525
  Serious: No
  Sender: FDA-Public Use
  Company Number: US-TEVA-601877USA

PATIENT
  Sex: Female

DRUGS (1)
  1. ZECUITY [Suspect]
     Active Substance: SUMATRIPTAN SUCCINATE
     Dosage: 6.5 MG / 4 HOURS
     Route: 062

REACTIONS (5)
  - Device battery issue [Unknown]
  - Application site paraesthesia [Unknown]
  - Drug ineffective [Unknown]
  - Chest pain [Unknown]
  - Application site pain [Unknown]
